FAERS Safety Report 18880330 (Version 3)
Quarter: 2021Q1

REPORT INFORMATION
  Report Type: Report from Study
  Country: JP (occurrence: JP)
  Receive Date: 20210211
  Receipt Date: 20210305
  Transmission Date: 20210420
  Serious: Yes (Death, Hospitalization)
  Sender: FDA-Public Use
  Company Number: JP-ROCHE-2766220

PATIENT
  Age: 77 Year
  Sex: Male
  Weight: 58.2 kg

DRUGS (8)
  1. DOXORUBICIN [Suspect]
     Active Substance: DOXORUBICIN
     Indication: DIFFUSE LARGE B-CELL LYMPHOMA
     Dosage: START DATE OF MOST RECENT DOSE OF DOXORUBICIN, 79 MG PRIOR TO SAE 08/NOV/2018
     Route: 042
     Dates: start: 20180726
  2. CYCLOPHOSPHAMIDE. [Suspect]
     Active Substance: CYCLOPHOSPHAMIDE
     Indication: DIFFUSE LARGE B-CELL LYMPHOMA
     Dosage: START DATE OF MOST RECENT DOSE OF CYCLOPHOSPHAMIDE, 1184 MG PRIOR TO SAE 08/NOV/2018
     Route: 042
     Dates: start: 20180726
  3. RITUXIMAB. [Suspect]
     Active Substance: RITUXIMAB
     Indication: DIFFUSE LARGE B-CELL LYMPHOMA
     Dosage: START DATE OF MOST RECENT DOSE OF RITUXIMAB 592 MG PRIOR TO SAE  19/DEC/2018
     Route: 041
     Dates: start: 20180725
  4. REBAMIPIDE [Concomitant]
     Active Substance: REBAMIPIDE
  5. TELMISARTAN. [Concomitant]
     Active Substance: TELMISARTAN
  6. PLACEBO [Suspect]
     Active Substance: UNSPECIFIED INGREDIENT
     Indication: DIFFUSE LARGE B-CELL LYMPHOMA
     Dosage: START DATE OF MOST RECENT DOSE OF PLACEBO POLATUZUMAB VEDOTIN PRIOR TO SAE: 08/NOV/2018
     Route: 042
     Dates: start: 20180726
  7. VINCRISTINE [Suspect]
     Active Substance: VINCRISTINE
     Indication: DIFFUSE LARGE B-CELL LYMPHOMA
     Dosage: END DATE OF MOST RECENT DOSE OF VINCRISTINE PRIOR TO SAE 08/NOV/2018
     Route: 042
     Dates: start: 20180726
  8. PREDNISONE. [Suspect]
     Active Substance: PREDNISONE
     Indication: DIFFUSE LARGE B-CELL LYMPHOMA
     Dosage: START DATE OF MOST RECENT DOSE OF PREDNISONE, 100 MG PRIOR TO SAE 11/NOV/2018
     Route: 042
     Dates: start: 20180725

REACTIONS (1)
  - Acute myeloid leukaemia [Fatal]

NARRATIVE: CASE EVENT DATE: 20210208
